FAERS Safety Report 17468093 (Version 3)
Quarter: 2020Q2

REPORT INFORMATION
  Report Type: Report from Study
  Country: DE (occurrence: DE)
  Receive Date: 20200227
  Receipt Date: 20200624
  Transmission Date: 20200713
  Serious: Yes (Other)
  Sender: FDA-Public Use
  Company Number: NVSC2020DE045947

PATIENT
  Age: 27 Year
  Sex: Female
  Weight: 70 kg

DRUGS (7)
  1. ILARIS [Suspect]
     Active Substance: CANAKINUMAB
     Dosage: 150 MG (EVERY 8 WEEKS)
     Route: 065
     Dates: start: 201602
  2. ILARIS [Suspect]
     Active Substance: CANAKINUMAB
     Dosage: 300 MG,(EVERY 7 WEEKS)
     Route: 058
  3. ILARIS [Suspect]
     Active Substance: CANAKINUMAB
     Dosage: 300 MG (EVERY 7 WEEKS)
     Route: 058
     Dates: start: 201809
  4. ILARIS [Suspect]
     Active Substance: CANAKINUMAB
     Dosage: 150 MG
     Route: 058
     Dates: start: 20191217
  5. ILARIS [Suspect]
     Active Substance: CANAKINUMAB
     Dosage: 150 MG (EVERY 8 WEEKS)
     Route: 065
     Dates: start: 20160623
  6. ILARIS [Suspect]
     Active Substance: CANAKINUMAB
     Indication: MUCKLE-WELLS SYNDROME
     Dosage: UNK
     Route: 058
  7. ILARIS [Suspect]
     Active Substance: CANAKINUMAB
     Dosage: 150 MG
     Route: 058
     Dates: start: 20191220

REACTIONS (2)
  - Maternal exposure during pregnancy [Not Recovered/Not Resolved]
  - Abortion [Unknown]

NARRATIVE: CASE EVENT DATE: 20200213
